FAERS Safety Report 5800703-8 (Version None)
Quarter: 2008Q3

REPORT INFORMATION
  Report Type: 
  Country: None (occurrence: None)
  Receive Date: 20080703
  Receipt Date: 20080620
  Transmission Date: 20090109
  Serious: Yes (Hospitalization)
  Sender: FDA-Public Use
  Company Number: FR-GENENTECH-263546

PATIENT
  Sex: Female

DRUGS (9)
  1. BEVACIZUMAB [Suspect]
     Indication: RECTAL CANCER
     Dosage: 325 MG, UNK
     Route: 042
     Dates: start: 20080506
  2. OXALIPLATIN [Suspect]
     Indication: RECTAL CANCER
     Dosage: 14700 MG, UNK
     Route: 042
     Dates: start: 20080506
  3. ACIDE FOLIQUE [Suspect]
     Indication: RECTAL CANCER
     Dosage: 346 MG, UNK
     Route: 042
     Dates: start: 20080506
  4. FLUOROURACIL [Suspect]
     Indication: RECTAL CANCER
     Dosage: 690 MG, UNK
     Route: 042
     Dates: start: 20080506
  5. CANDESARTAN [Concomitant]
     Indication: DRUG USE FOR UNKNOWN INDICATION
  6. LERCAN [Concomitant]
     Indication: DRUG USE FOR UNKNOWN INDICATION
  7. ALPRAZOLAM [Concomitant]
     Indication: DRUG USE FOR UNKNOWN INDICATION
  8. PANTOPRAZOLE SODIUM [Concomitant]
     Indication: DRUG USE FOR UNKNOWN INDICATION
  9. LIPANOR [Concomitant]
     Indication: DRUG USE FOR UNKNOWN INDICATION

REACTIONS (1)
  - TACHYCARDIA [None]
